FAERS Safety Report 7784512-9 (Version None)
Quarter: 2011Q3

REPORT INFORMATION
  Report Type: 
  Country: None (occurrence: None)
  Receive Date: 20110928
  Receipt Date: 20110920
  Transmission Date: 20111222
  Serious: Yes (Other)
  Sender: FDA-Public Use
  Company Number: JP-JNJFOC-20110500024

PATIENT
  Sex: Female
  Weight: 54 kg

DRUGS (13)
  1. PODONIN-S [Concomitant]
     Indication: PROPHYLAXIS
     Route: 048
     Dates: start: 20100420
  2. RISPERDAL [Suspect]
     Indication: PRODUCT USED FOR UNKNOWN INDICATION
     Route: 048
     Dates: start: 20100420, end: 20100520
  3. RISPERDAL [Suspect]
     Route: 048
     Dates: start: 20100420, end: 20100430
  4. LONASEN [Suspect]
     Route: 048
     Dates: start: 20100524, end: 20101108
  5. RISPERDAL CONSTA [Suspect]
     Route: 030
     Dates: start: 20100623
  6. FLUNITRAZEPAM [Concomitant]
     Route: 048
     Dates: start: 20100420
  7. SENNOSIDE [Concomitant]
     Indication: PROPHYLAXIS
     Route: 048
     Dates: start: 20100420
  8. RISPERDAL [Suspect]
     Route: 048
     Dates: start: 20100509, end: 20100621
  9. RISPERDAL CONSTA [Suspect]
     Indication: SCHIZOPHRENIA
     Route: 030
     Dates: start: 20100428, end: 20100609
  10. LONASEN [Suspect]
     Indication: PRODUCT USED FOR UNKNOWN INDICATION
     Route: 048
     Dates: start: 20100420, end: 20100523
  11. ZYPREXA [Suspect]
     Indication: PRODUCT USED FOR UNKNOWN INDICATION
     Route: 048
     Dates: start: 20100420, end: 20100803
  12. ZYPREXA [Suspect]
     Route: 048
     Dates: start: 20100804
  13. OMEPRAZOLE [Concomitant]
     Indication: GASTRIC ULCER
     Route: 048
     Dates: start: 20100706, end: 20101205

REACTIONS (9)
  - MYOCARDIAL INFARCTION [None]
  - CONDITION AGGRAVATED [None]
  - VENTRICULAR EXTRASYSTOLES [None]
  - SINUS TACHYCARDIA [None]
  - BLOOD GLUCOSE INCREASED [None]
  - ELECTROCARDIOGRAM PR SHORTENED [None]
  - WEIGHT INCREASED [None]
  - ELECTROCARDIOGRAM Q WAVE ABNORMAL [None]
  - HYPERPROLACTINAEMIA [None]
